FAERS Safety Report 8769325 (Version 1)
Quarter: 2012Q4

REPORT INFORMATION
  Report Type: 
  Country: US (occurrence: US)
  Receive Date: 20120829
  Receipt Date: 20120829
  Transmission Date: 20130627
  Serious: Yes (Other)
  Sender: FDA-Public Use
  Company Number: US-BAYER-2012-073906

PATIENT
  Age: 64 Year
  Sex: Female
  Weight: 54.88 kg

DRUGS (10)
  1. BAYER CHEWABLE LOW DOSE BABY ASPIRIN TABLET ORANGE [Suspect]
     Dosage: 81 mg, UNK
     Dates: end: 201203
  2. JAFAKI (RUXOLITINIB) TABLET, 20MG [Suspect]
     Indication: MYELOFIBROSIS
     Dosage: 20 mg, BID
     Route: 048
     Dates: start: 20120301, end: 20120424
  3. JAFAKI (RUXOLITINIB) TABLET, 20MG [Suspect]
     Indication: MYELOFIBROSIS
     Dosage: 20 mg, BID
     Route: 048
     Dates: start: 20120502
  4. AVAPRO [Concomitant]
  5. ALLOPURINOL [Concomitant]
  6. LASIX [Concomitant]
  7. NEXIUM [Concomitant]
  8. CALCIUM [Concomitant]
  9. MULTIVITAMIN [Concomitant]
  10. TOPROL [Concomitant]

REACTIONS (5)
  - Anaemia [Recovered/Resolved]
  - Haemoglobin decreased [Recovered/Resolved]
  - Haematoma [Recovered/Resolved]
  - Contusion [Recovered/Resolved]
  - Platelet count decreased [Recovered/Resolved]
